FAERS Safety Report 25609137 (Version 1)
Quarter: 2025Q3

REPORT INFORMATION
  Report Type: Other
  Country: GB (occurrence: GB)
  Receive Date: 20250727
  Receipt Date: 20250727
  Transmission Date: 20251021
  Serious: Yes (Other)
  Sender: GLENMARK
  Company Number: None

PATIENT
  Age: 59 Year
  Sex: Male
  Weight: 160 kg

DRUGS (18)
  1. DAPAGLIFLOZIN [Suspect]
     Active Substance: DAPAGLIFLOZIN
     Indication: Ill-defined disorder
     Dosage: 10 MILLIGRAM, QD (TAKE ONE DAILY, NOT TO BE STARTED UNTIL SPOKEN)
     Route: 065
     Dates: start: 20250401, end: 20250429
  2. EPIMAX EXCETRA [Concomitant]
     Indication: Ill-defined disorder
     Route: 065
     Dates: start: 20250429, end: 20250527
  3. FERROUS FUMARATE [Concomitant]
     Active Substance: FERROUS FUMARATE
     Indication: Ill-defined disorder
     Dosage: TID (TAKE ONE 3 TIMES/DAY)
     Route: 065
  4. TIRZEPATIDE [Concomitant]
     Active Substance: TIRZEPATIDE
     Indication: Ill-defined disorder
     Route: 065
  5. AMITRIPTYLINE HYDROCHLORIDE [Concomitant]
     Active Substance: AMITRIPTYLINE HYDROCHLORIDE
     Indication: Ill-defined disorder
     Route: 065
     Dates: start: 20240605
  6. ATORVASTATIN [Concomitant]
     Active Substance: ATORVASTATIN
     Indication: Ill-defined disorder
     Dosage: QD (TAKE ONE DAILY)
     Route: 065
     Dates: start: 20240605
  7. FUROSEMIDE [Concomitant]
     Active Substance: FUROSEMIDE
     Indication: Ill-defined disorder
     Dosage: 1 DOSAGE FORM, BID (TAKE ONE TABLET TWICE DAILY)
     Route: 065
     Dates: start: 20240605
  8. POLYETHYLENE GLYCOL 3350\POTASSIUM CHLORIDE\SODIUM BICARBONATE\SODIUM [Concomitant]
     Active Substance: POLYETHYLENE GLYCOL 3350\POTASSIUM CHLORIDE\SODIUM BICARBONATE\SODIUM CHLORIDE
     Indication: Ill-defined disorder
     Dosage: UNK, QD (1 DAILY)
     Route: 065
     Dates: start: 20240605, end: 20250429
  9. METFORMIN [Concomitant]
     Active Substance: METFORMIN HYDROCHLORIDE
     Indication: Ill-defined disorder
     Dosage: UNK, BID (TWO TO BE TAKEN TWICE DAILY)
     Route: 065
     Dates: start: 20240605
  10. MICONAZOLE [Concomitant]
     Active Substance: MICONAZOLE
     Indication: Ill-defined disorder
     Dosage: UNK, BID (APPLY TWICE DAILY ON AFFECTED FACE AREA AND EARS)
     Route: 065
     Dates: start: 20240605, end: 20250429
  11. OMEPRAZOLE [Concomitant]
     Active Substance: OMEPRAZOLE
     Indication: Ill-defined disorder
     Dosage: 1 DOSAGE FORM, BID (TAKE ONE CAPSULE TWICE DAILY)
     Route: 065
     Dates: start: 20240605
  12. RAMIPRIL [Concomitant]
     Active Substance: RAMIPRIL
     Indication: Ill-defined disorder
     Dosage: UNK, QD (TAKE ONE DAILY)
     Route: 065
     Dates: start: 20240605
  13. SENNA [Concomitant]
     Active Substance: SENNOSIDES
     Indication: Ill-defined disorder
     Route: 065
     Dates: start: 20240605, end: 20250429
  14. TAMSULOSIN HYDROCHLORIDE [Concomitant]
     Active Substance: TAMSULOSIN HYDROCHLORIDE
     Indication: Ill-defined disorder
     Dosage: QD (ONE TO BE TAKEN EVERY DAY)
     Route: 065
     Dates: start: 20240605
  15. GLICLAZIDE [Concomitant]
     Active Substance: GLICLAZIDE
     Indication: Ill-defined disorder
     Dosage: UNK, BID (ONE TO BE TAKEN TWICE DAILY-REDUCED DOSE)
     Route: 065
     Dates: start: 20250401
  16. INSTANT [Concomitant]
     Active Substance: ALCOHOL
     Indication: Ill-defined disorder
     Route: 065
     Dates: start: 20250409
  17. COCODAMOL [Concomitant]
     Active Substance: ACETAMINOPHEN\CODEINE PHOSPHATE
     Indication: Ill-defined disorder
     Dosage: UNK, QID (TAKE TWO 4 TIMES/DAY)
     Route: 065
     Dates: start: 20250603
  18. NAPROXEN [Concomitant]
     Active Substance: NAPROXEN
     Indication: Ill-defined disorder
     Dosage: 1 DOSAGE FORM, BID (TAKE ONE TABLET TWICE DAILY WITH FOOD WHEN REQU)
     Route: 065
     Dates: start: 20250603

REACTIONS (2)
  - Oral mucosal blistering [Recovered/Resolved]
  - Malaise [Unknown]
